FAERS Safety Report 17699571 (Version 1)
Quarter: 2020Q2

REPORT INFORMATION
  Report Type: Spontaneous
  Country: DE (occurrence: DE)
  Receive Date: 20200423
  Receipt Date: 20200423
  Transmission Date: 20200714
  Serious: Yes (Other)
  Sender: FDA-Public Use
  Company Number: NVSC2020DE107656

PATIENT
  Sex: Male

DRUGS (7)
  1. SERTRALINE [Interacting]
     Active Substance: SERTRALINE HYDROCHLORIDE
     Indication: SLEEP DISORDER
  2. QUETIAPINE. [Interacting]
     Active Substance: QUETIAPINE
     Indication: DEPRESSED MOOD
  3. QUETIAPINE. [Interacting]
     Active Substance: QUETIAPINE
     Indication: INTRUSIVE THOUGHTS
     Dosage: 100 MG, QD (NOCTURNAL)
     Route: 065
  4. SERTRALINE [Suspect]
     Active Substance: SERTRALINE HYDROCHLORIDE
     Indication: DEPRESSED MOOD
     Dosage: 50 MG, QD (50 MG IN THE MORNING)
     Route: 065
  5. SERTRALINE [Interacting]
     Active Substance: SERTRALINE HYDROCHLORIDE
     Indication: INTRUSIVE THOUGHTS
  6. QUETIAPINE. [Interacting]
     Active Substance: QUETIAPINE
     Indication: SLEEP DISORDER
  7. DIBRO-BE MONO [Interacting]
     Active Substance: POTASSIUM BROMIDE
     Indication: SEVERE MYOCLONIC EPILEPSY OF INFANCY
     Dosage: 3285 MG, QD (2 - 0 - 2.5; = DAILY DOSE OF 3825 MG; TAKEN FOR MANY YEARS)
     Route: 065

REACTIONS (7)
  - Sleep disorder [Unknown]
  - Drug interaction [Unknown]
  - Depressed mood [Unknown]
  - Gastric ulcer [Unknown]
  - Anticonvulsant drug level increased [Unknown]
  - Intrusive thoughts [Unknown]
  - Abdominal pain upper [Unknown]
